FAERS Safety Report 17434063 (Version 2)
Quarter: 2020Q1

REPORT INFORMATION
  Report Type: Spontaneous
  Country: CH (occurrence: CZ)
  Receive Date: 20200219
  Receipt Date: 20200310
  Transmission Date: 20200409
  Serious: Yes (Death, Other)
  Sender: FDA-Public Use
  Company Number: CZ-ASTELLAS-2020US006112

PATIENT
  Age: 56 Year
  Sex: Male

DRUGS (3)
  1. CRESEMBA [Suspect]
     Active Substance: ISAVUCONAZONIUM SULFATE
     Indication: PRODUCT USED FOR UNKNOWN INDICATION
     Route: 042
  2. VFEND [Suspect]
     Active Substance: VORICONAZOLE
     Indication: PRODUCT USED FOR UNKNOWN INDICATION
     Route: 042
  3. AMPHOTERICIN B, LIPOSOME [Suspect]
     Active Substance: AMPHOTERICIN B
     Indication: GASTRIC ULCER PERFORATION
     Dosage: UNK UNK, UNKNOWN FREQ.
     Route: 042
     Dates: start: 202001

REACTIONS (5)
  - Haemorrhage [Fatal]
  - Shock haemorrhagic [Fatal]
  - Pancreatic disorder [Fatal]
  - Splenic artery perforation [Fatal]
  - Renal impairment [Fatal]

NARRATIVE: CASE EVENT DATE: 202001
